FAERS Safety Report 4976888-2 (Version None)
Quarter: 2006Q2

REPORT INFORMATION
  Report Type: 
  Country: None (occurrence: None)
  Receive Date: 20060412
  Receipt Date: 20060405
  Transmission Date: 20061013
  Serious: Yes (Death)
  Sender: FDA-Public Use
  Company Number: B0419504A

PATIENT

DRUGS (4)
  1. BUSULPHAN (FORMULATION UNKNOWN)    (GENERIC)    (BUSULFAN) [Suspect]
     Indication: CORD BLOOD TRANSPLANT THERAPY
     Dosage: 8 MG/KG
  2. ALKERAN [Suspect]
     Indication: CORD BLOOD TRANSPLANT THERAPY
     Dosage: 80 MG/M2
  3. FLUDARABINE PHOSPHATE [Suspect]
     Indication: CORD BLOOD TRANSPLANT THERAPY
     Dosage: 125 MG/M2
  4. RADIOTHERAPY (RADIOTHERAPY) [Suspect]
     Indication: CORD BLOOD TRANSPLANT THERAPY

REACTIONS (3)
  - CORD BLOOD TRANSPLANT THERAPY [None]
  - DRUG TOXICITY [None]
  - PNEUMONIA [None]
